FAERS Safety Report 9166017 (Version 1)
Quarter: 2013Q1

REPORT INFORMATION
  Report Type: Spontaneous
  Country: FR (occurrence: FR)
  Receive Date: 20130315
  Receipt Date: 20130315
  Transmission Date: 20140127
  Serious: Yes (Other)
  Sender: FDA-Public Use
  Company Number: FR-GLAXOSMITHKLINE-B0873339A

PATIENT
  Age: 26 Year
  Sex: Male

DRUGS (5)
  1. ZOPHREN [Suspect]
     Indication: PREMEDICATION
     Route: 048
     Dates: start: 20130201, end: 20130201
  2. ENDOXAN [Suspect]
     Indication: GRANULOMATOSIS WITH POLYANGIITIS
     Route: 042
     Dates: start: 20130201, end: 20130201
  3. UROMITEXAN [Suspect]
     Indication: PREMEDICATION
     Route: 065
     Dates: start: 20130201, end: 20130201
  4. CORTANCYL [Concomitant]
     Indication: GRANULOMATOSIS WITH POLYANGIITIS
     Route: 065
     Dates: start: 2012
  5. BACTRIM [Concomitant]
     Indication: GRANULOMATOSIS WITH POLYANGIITIS
     Route: 065
     Dates: start: 2012

REACTIONS (3)
  - Malaise [Recovered/Resolved]
  - Pyrexia [Recovered/Resolved]
  - Rash maculo-papular [Recovered/Resolved]
